FAERS Safety Report 6674381-2 (Version None)
Quarter: 2010Q2

REPORT INFORMATION
  Report Type: 
  Country: None (occurrence: None)
  Receive Date: 20100409
  Receipt Date: 20100406
  Transmission Date: 20101027
  Serious: Yes (Life-Threatening, Hospitalization, Other)
  Sender: FDA-Public Use
  Company Number: US-B.I. PHARMACEUTICALS,INC./RIDGEFIELD-2010-BP-03956BP

PATIENT
  Sex: Female

DRUGS (10)
  1. SPIRIVA [Suspect]
     Indication: CHRONIC OBSTRUCTIVE PULMONARY DISEASE
     Dosage: 18 MCG
     Route: 055
     Dates: start: 20050101
  2. ADVAIR DISKUS 100/50 [Concomitant]
     Indication: CHRONIC OBSTRUCTIVE PULMONARY DISEASE
  3. ALBUTEROL [Concomitant]
     Indication: CHRONIC OBSTRUCTIVE PULMONARY DISEASE
  4. PULMICORT [Concomitant]
     Indication: CHRONIC OBSTRUCTIVE PULMONARY DISEASE
  5. ALLEGRA [Concomitant]
     Indication: RASH
  6. ASPIRIN [Concomitant]
     Indication: PROPHYLAXIS
  7. OXYGEN [Concomitant]
     Indication: CHRONIC OBSTRUCTIVE PULMONARY DISEASE
  8. ZOCOR [Concomitant]
     Indication: BLOOD CHOLESTEROL INCREASED
  9. NASONEX [Concomitant]
     Indication: NASAL CONGESTION
  10. SALINE SPRAY [Concomitant]
     Indication: NASAL CONGESTION

REACTIONS (10)
  - ANXIETY [None]
  - AORTIC ANEURYSM [None]
  - BREAST CANCER [None]
  - CORONARY ARTERY OCCLUSION [None]
  - DIABETES MELLITUS [None]
  - GASTRIC DISORDER [None]
  - HYPERTENSION [None]
  - RESPIRATORY FAILURE [None]
  - RESTLESS LEGS SYNDROME [None]
  - SLEEP DISORDER [None]
